FAERS Safety Report 24656780 (Version 2)
Quarter: 2024Q4

REPORT INFORMATION
  Report Type: Spontaneous
  Country: US (occurrence: US)
  Receive Date: 20241125
  Receipt Date: 20241230
  Transmission Date: 20250115
  Serious: No
  Sender: ROCHE
  Company Number: US-ROCHE-10000136377

PATIENT
  Age: 78 Year
  Sex: Female
  Weight: 61.23 kg

DRUGS (5)
  1. ACTEMRA ACTPEN [Suspect]
     Active Substance: TOCILIZUMAB
     Indication: Rheumatoid arthritis
     Route: 058
     Dates: start: 202411
  2. ACTEMRA ACTPEN [Suspect]
     Active Substance: TOCILIZUMAB
     Indication: Arthritis
  3. ACTEMRA ACTPEN [Suspect]
     Active Substance: TOCILIZUMAB
     Indication: Psoriasis
  4. SIMPONI [Concomitant]
     Active Substance: GOLIMUMAB
     Indication: Psoriasis
  5. SIMPONI [Concomitant]
     Active Substance: GOLIMUMAB
     Indication: Arthritis

REACTIONS (5)
  - Device defective [Unknown]
  - Needle issue [Unknown]
  - Device leakage [Unknown]
  - No adverse event [Unknown]
  - Product dose omission issue [Unknown]
